FAERS Safety Report 7693814-6 (Version None)
Quarter: 2011Q3

REPORT INFORMATION
  Report Type: 
  Country: None (occurrence: None)
  Receive Date: 20110819
  Receipt Date: 20110713
  Transmission Date: 20111222
  Serious: No
  Sender: FDA-Public Use
  Company Number: US-ALLERGAN-1109466US

PATIENT
  Age: 46 Year
  Sex: Female

DRUGS (1)
  1. LASTACAFT [Suspect]
     Indication: SEASONAL ALLERGY
     Dosage: 1 GTT, QAM
     Route: 047
     Dates: start: 20110201, end: 20110501

REACTIONS (2)
  - OCULAR HYPERAEMIA [None]
  - ERYTHEMA OF EYELID [None]
